FAERS Safety Report 7823613-3 (Version None)
Quarter: 2011Q4

REPORT INFORMATION
  Report Type: 
  Country: None (occurrence: None)
  Receive Date: 20111019
  Receipt Date: 20111014
  Transmission Date: 20120403
  Serious: Yes (Hospitalization)
  Sender: FDA-Public Use
  Company Number: US-PFIZER INC-2011203614

PATIENT
  Sex: Female

DRUGS (10)
  1. MYCOPHENOLATE MOFETIL (CELLCEPT) [Concomitant]
     Dosage: UNK
  2. ZANTAC [Concomitant]
     Dosage: UNK
  3. RAPAMUNE [Suspect]
     Indication: HEART TRANSPLANT
     Dosage: 1.25 MG, 1X/DAY
     Route: 048
     Dates: start: 20110311, end: 20110825
  4. DIFLUCAN [Concomitant]
     Dosage: UNK
  5. VASOTEC [Concomitant]
     Dosage: UNK
  6. MAGNESIUM [Concomitant]
     Dosage: UNK
  7. TRIMETHOPRIM [Concomitant]
     Dosage: UNK
  8. PERIACTIN [Concomitant]
     Dosage: UNK
  9. PRELONE [Concomitant]
     Dosage: UNK
  10. FOLIC ACID [Concomitant]
     Dosage: UNK

REACTIONS (4)
  - DIARRHOEA [None]
  - TOXICITY TO VARIOUS AGENTS [None]
  - DRUG LEVEL INCREASED [None]
  - WEIGHT DECREASED [None]
